FAERS Safety Report 7460566-4 (Version None)
Quarter: 2011Q2

REPORT INFORMATION
  Report Type: 
  Country: None (occurrence: None)
  Receive Date: 20110505
  Receipt Date: 20110430
  Transmission Date: 20111010
  Serious: Yes (Hospitalization)
  Sender: FDA-Public Use
  Company Number: US-BRISTOL-MYERS SQUIBB COMPANY-15710072

PATIENT
  Age: 80 Year
  Sex: Male
  Weight: 117 kg

DRUGS (10)
  1. PACERONE [Suspect]
  2. DILAUDID [Suspect]
  3. ATENOLOL [Suspect]
  4. FEOSOL [Suspect]
  5. TERAZOSIN HCL [Suspect]
  6. COUMADIN [Suspect]
  7. ZYLOPRIM [Suspect]
  8. IPILIMUMAB [Suspect]
     Indication: MALIGNANT MELANOMA
     Dosage: LAST DOSE ON 06APR11, NO OF COURSES = 2
     Route: 042
     Dates: start: 20110316
  9. OXYCODONE [Suspect]
  10. DURAGESIC-50 [Suspect]

REACTIONS (1)
  - DYSPNOEA [None]
